FAERS Safety Report 14829233 (Version 1)
Quarter: 2018Q2

REPORT INFORMATION
  Report Type: Spontaneous
  Country: US (occurrence: US)
  Receive Date: 20180407
  Receipt Date: 20180407
  Transmission Date: 20180711
  Serious: No
  Sender: FDA-Public Use
  Company Number: None

PATIENT
  Age: 28 Year
  Sex: Female
  Weight: 42.75 kg

DRUGS (1)
  1. ANBESOL REGULAR STRENGTH GEL [Suspect]
     Active Substance: BENZOCAINE
     Indication: APHTHOUS ULCER
     Route: 061
     Dates: start: 20180404, end: 20180407

REACTIONS (2)
  - Headache [None]
  - Pallor [None]

NARRATIVE: CASE EVENT DATE: 20180407
